FAERS Safety Report 13938054 (Version 1)
Quarter: 2017Q3

REPORT INFORMATION
  Report Type: Spontaneous
  Country: US (occurrence: US)
  Receive Date: 20170905
  Receipt Date: 20170905
  Transmission Date: 20171127
  Serious: Yes (Hospitalization, Other)
  Sender: FDA-Public Use
  Company Number: US-BEH-2017083285

PATIENT
  Sex: Female
  Weight: 70.3 kg

DRUGS (30)
  1. HIZENTRA [Suspect]
     Active Substance: HUMAN IMMUNOGLOBULIN G
     Indication: IMMUNODEFICIENCY COMMON VARIABLE
     Dosage: 13 G, QW
     Route: 058
     Dates: start: 20161024
  2. HIZENTRA [Suspect]
     Active Substance: HUMAN IMMUNOGLOBULIN G
     Dosage: UNK
     Route: 058
  3. MIRALAX [Concomitant]
     Active Substance: POLYETHYLENE GLYCOL 3350
  4. OMEGA 3                            /01333901/ [Concomitant]
     Active Substance: FISH OIL\TOCOPHEROL
  5. GEMFIBROZIL. [Concomitant]
     Active Substance: GEMFIBROZIL
  6. LEVALBUTEROL. [Concomitant]
     Active Substance: LEVALBUTEROL
  7. OXYCODONE [Concomitant]
     Active Substance: OXYCODONE
  8. CENTRUM SILVER                     /02363801/ [Concomitant]
     Active Substance: MINERALS\VITAMINS
  9. SPIRIVA [Concomitant]
     Active Substance: TIOTROPIUM BROMIDE MONOHYDRATE
  10. CALCIUM +D                         /00944201/ [Concomitant]
     Active Substance: CALCIUM CARBONATE\CHOLECALCIFEROL
  11. SYMBICORT [Concomitant]
     Active Substance: BUDESONIDE\FORMOTEROL FUMARATE DIHYDRATE
  12. LORAZEPAM. [Concomitant]
     Active Substance: LORAZEPAM
  13. AZELASTINE [Concomitant]
     Active Substance: AZELASTINE
  14. VITAMIN D3 [Concomitant]
     Active Substance: CHOLECALCIFEROL
  15. OXYGEN. [Concomitant]
     Active Substance: OXYGEN
  16. PREDNISONE. [Concomitant]
     Active Substance: PREDNISONE
  17. LYRICA [Concomitant]
     Active Substance: PREGABALIN
  18. PULMICORT TURBUHALER [Concomitant]
     Active Substance: BUDESONIDE
  19. LAMOTRIGINE. [Concomitant]
     Active Substance: LAMOTRIGINE
  20. SELENIUM [Concomitant]
     Active Substance: SELENIUM
  21. ZANTAC [Concomitant]
     Active Substance: RANITIDINE HYDROCHLORIDE
  22. GUANFACINE. [Concomitant]
     Active Substance: GUANFACINE
  23. AZASITE [Concomitant]
     Active Substance: AZITHROMYCIN MONOHYDRATE
  24. ACIPHEX [Concomitant]
     Active Substance: RABEPRAZOLE SODIUM
  25. XOPENEX [Concomitant]
     Active Substance: LEVALBUTEROL HYDROCHLORIDE
  26. CRANBERRY                          /01512301/ [Concomitant]
     Active Substance: CRANBERRY
  27. LMX                                /00033401/ [Concomitant]
  28. SEROQUEL [Concomitant]
     Active Substance: QUETIAPINE FUMARATE
  29. PROBIOTIC                          /06395501/ [Concomitant]
     Active Substance: BIFIDOBACTERIUM ANIMALIS LACTIS
  30. PROLIA [Concomitant]
     Active Substance: DENOSUMAB

REACTIONS (2)
  - Lung neoplasm malignant [Unknown]
  - Pneumonia [Unknown]

NARRATIVE: CASE EVENT DATE: 2017
